FAERS Safety Report 7979155-8 (Version None)
Quarter: 2011Q4

REPORT INFORMATION
  Report Type: 
  Country: None (occurrence: None)
  Receive Date: 20111214
  Receipt Date: 20111207
  Transmission Date: 20120403
  Serious: Yes (Other)
  Sender: FDA-Public Use
  Company Number: US-JNJFOC-20111203934

PATIENT
  Sex: Male

DRUGS (2)
  1. SIMVASTATIN [Concomitant]
     Dates: end: 20110101
  2. XARELTO [Suspect]
     Indication: ATRIAL FIBRILLATION
     Route: 048
     Dates: start: 20110101, end: 20110101

REACTIONS (1)
  - HALLUCINATION [None]
